FAERS Safety Report 8755915 (Version 1)
Quarter: 2012Q4

REPORT INFORMATION
  Report Type: Spontaneous
  Country: US (occurrence: None)
  Receive Date: 20120830
  Receipt Date: 20120830
  Transmission Date: 20130627
  Serious: Yes (Hospitalization)
  Sender: FDA-Public Use
  Company Number: DL2012-0708

PATIENT
  Age: 20 Year
  Sex: Female

DRUGS (3)
  1. MIFEPRISTONE [Suspect]
     Route: 048
     Dates: start: 20120801
  2. MISOPROSTOL [Suspect]
     Route: 002
     Dates: start: 20120803
  3. DOXYCYCLINE [Concomitant]

REACTIONS (2)
  - Endometritis [None]
  - Maternal exposure during pregnancy [None]
